FAERS Safety Report 4970680-0 (Version None)
Quarter: 2006Q2

REPORT INFORMATION
  Report Type: 
  Country: None (occurrence: None)
  Receive Date: 20060412
  Receipt Date: 20060331
  Transmission Date: 20061013
  Serious: Yes (Hospitalization)
  Sender: FDA-Public Use
  Company Number: PHBS2006IT05054

PATIENT
  Age: 58 Year
  Sex: Male

DRUGS (5)
  1. GEMCITABINE [Concomitant]
  2. CISPLATIN [Concomitant]
  3. TAXOTERE [Concomitant]
  4. FOLINA [Concomitant]
  5. ZOMETA [Suspect]
     Indication: METASTASES TO BONE
     Dosage: 4 MG, QMO
     Route: 042
     Dates: start: 20050423

REACTIONS (2)
  - OSTEONECROSIS [None]
  - SURGERY [None]
